FAERS Safety Report 5173813-9 (Version None)
Quarter: 2006Q4

REPORT INFORMATION
  Report Type: 
  Country: None (occurrence: None)
  Receive Date: 20061214
  Receipt Date: 20061026
  Transmission Date: 20070319
  Serious: Yes (Hospitalization)
  Sender: FDA-Public Use
  Company Number: FR-GLAXOSMITHKLINE-B0444719A

PATIENT
  Sex: Female
  Weight: 2.6 kg

DRUGS (1)
  1. LAMICTAL [Suspect]
     Dosage: 400MG PER DAY
     Dates: end: 20061019

REACTIONS (13)
  - AGITATION [None]
  - ATROPHY [None]
  - CRYING [None]
  - DRUG EXPOSURE DURING PREGNANCY [None]
  - DRUG WITHDRAWAL SYNDROME [None]
  - DYSPHAGIA [None]
  - FEEDING DISORDER NEONATAL [None]
  - GASTROOESOPHAGEAL REFLUX DISEASE [None]
  - HYPERTONIA [None]
  - INFANTILE APNOEIC ATTACK [None]
  - NEONATAL RESPIRATORY DISTRESS SYNDROME [None]
  - OXYGEN SATURATION DECREASED [None]
  - TACHYPNOEA [None]
